FAERS Safety Report 5827017-4 (Version None)
Quarter: 2008Q3

REPORT INFORMATION
  Report Type: 
  Country: None (occurrence: None)
  Receive Date: 20080724
  Receipt Date: 20080710
  Transmission Date: 20090109
  Serious: Yes (Hospitalization, Other)
  Sender: FDA-Public Use
  Company Number: RENA-12286

PATIENT
  Age: 62 Year
  Sex: Female

DRUGS (6)
  1. RENAGEL [Suspect]
     Indication: HYPERPHOSPHATAEMIA
     Dosage: 3.2G, ORAL
     Route: 048
  2. AMLODIPINE [Concomitant]
  3. ENALAPRIL MALEATE [Concomitant]
  4. ESOMEPRAZOLE MAGNESIUM [Concomitant]
  5. ACETAMINOPHEN [Concomitant]
  6. VITAMIN B [Concomitant]

REACTIONS (3)
  - ARTERIOVENOUS FISTULA SITE COMPLICATION [None]
  - DRUG INTERACTION [None]
  - HYPOTHYROIDISM [None]
